FAERS Safety Report 18162244 (Version 6)
Quarter: 2022Q4

REPORT INFORMATION
  Report Type: Spontaneous
  Country: DE (occurrence: DE)
  Receive Date: 20200818
  Receipt Date: 20221031
  Transmission Date: 20230112
  Serious: Yes (Hospitalization, Other)
  Sender: FDA-Public Use
  Company Number: DE-002147023-NVSC2020DE045563

PATIENT
  Sex: Male
  Weight: 96 kg

DRUGS (18)
  1. METHOTREXATE [Suspect]
     Active Substance: METHOTREXATE
     Indication: Product used for unknown indication
     Dosage: UNK
     Route: 065
  2. CISPLATIN [Suspect]
     Active Substance: CISPLATIN
     Indication: Disease recurrence
     Dosage: START DATE: 04-JAN-2017
     Route: 065
  3. HYDROCHLOROTHIAZIDE\VALSARTAN [Suspect]
     Active Substance: HYDROCHLOROTHIAZIDE\VALSARTAN
     Indication: Hypertension
     Dosage: 1 DF, QD (MORNING)
     Route: 065
     Dates: start: 201401, end: 2014
  4. HYDROCHLOROTHIAZIDE\VALSARTAN [Suspect]
     Active Substance: HYDROCHLOROTHIAZIDE\VALSARTAN
     Dosage: 1 DF, QD (MORNING)
     Route: 065
     Dates: start: 201606
  5. HYDROCHLOROTHIAZIDE\VALSARTAN [Suspect]
     Active Substance: HYDROCHLOROTHIAZIDE\VALSARTAN
     Dosage: 1 DF, QD (MORNING)
     Route: 065
  6. HYDROCHLOROTHIAZIDE\VALSARTAN [Suspect]
     Active Substance: HYDROCHLOROTHIAZIDE\VALSARTAN
     Indication: Hypertension
     Dosage: (HYDROCHLOROTHIAZIDE 160, VALSARTAN 12.5)
     Route: 065
     Dates: start: 2015, end: 2015
  7. HYDROCHLOROTHIAZIDE\VALSARTAN [Suspect]
     Active Substance: HYDROCHLOROTHIAZIDE\VALSARTAN
     Dosage: UNK
     Route: 065
     Dates: start: 2015, end: 2015
  8. COTRIMOXAZOLE [Suspect]
     Active Substance: SULFAMETHOXAZOLE\TRIMETHOPRIM
     Indication: Product used for unknown indication
     Dosage: START DATE: UNKNOWN DATE IN DEC-2015
     Route: 065
     Dates: end: 201512
  9. DIOVAN [Suspect]
     Active Substance: VALSARTAN
     Indication: Product used for unknown indication
     Dosage: UNK
     Route: 065
  10. ENOXAPARIN SODIUM [Concomitant]
     Active Substance: ENOXAPARIN SODIUM
     Indication: Product used for unknown indication
     Dosage: 0.4 ML, QD (EVENING)
     Route: 058
     Dates: start: 201601
  11. ACYCLOVIR [Concomitant]
     Active Substance: ACYCLOVIR
     Indication: Infection prophylaxis
     Dosage: 1 DF, BID (MORNING AND EVENING)
     Route: 065
     Dates: start: 2016
  12. ACYCLOVIR [Concomitant]
     Active Substance: ACYCLOVIR
     Dosage: 2 DF, QD (NOON)
     Route: 065
     Dates: start: 2016
  13. ACYCLOVIR [Concomitant]
     Active Substance: ACYCLOVIR
     Dosage: 1 DF (MORNING AND EVENING)
     Route: 065
     Dates: start: 2016
  14. PANTOZOL [Concomitant]
     Active Substance: PANTOPRAZOLE SODIUM
     Indication: Product used for unknown indication
     Dosage: 40 MG, QD (MORNING)
     Route: 065
  15. ONDANSETRON [Concomitant]
     Active Substance: ONDANSETRON
     Indication: Product used for unknown indication
     Dosage: 8 MILLIGRAM, PRN
     Route: 065
     Dates: start: 2016
  16. NEUPOGEN [Concomitant]
     Active Substance: FILGRASTIM
     Indication: Product used for unknown indication
     Dosage: 30 INTERNATIONAL UNIT, QD
     Route: 058
     Dates: start: 201512, end: 2016
  17. NEULASTA [Concomitant]
     Active Substance: PEGFILGRASTIM
     Indication: Product used for unknown indication
     Dosage: 6 MILLIGRAM
     Route: 065
     Dates: start: 201512
  18. PREDNISONE [Concomitant]
     Active Substance: PREDNISONE
     Indication: Product used for unknown indication
     Dosage: 100 MILLIGRAM, QD
     Route: 065
     Dates: start: 20160131

REACTIONS (43)
  - Disease recurrence [Unknown]
  - Ascites [Recovered/Resolved]
  - Non-Hodgkin^s lymphoma [Unknown]
  - Night sweats [Recovered/Resolved]
  - Hypoventilation [Unknown]
  - General physical health deterioration [Recovered/Resolved]
  - Abdominal mass [Unknown]
  - C-reactive protein increased [Unknown]
  - Oedema peripheral [Unknown]
  - Systemic scleroderma [Unknown]
  - Polyneuropathy [Not Recovered/Not Resolved]
  - Cardiac failure [Not Recovered/Not Resolved]
  - Ventricular dysfunction [Unknown]
  - Immunodeficiency [Not Recovered/Not Resolved]
  - Nocturia [Unknown]
  - Mitral valve incompetence [Unknown]
  - Basal cell carcinoma [Unknown]
  - Tricuspid valve incompetence [Unknown]
  - Pleural effusion [Unknown]
  - Acute kidney injury [Unknown]
  - Dyspnoea [Unknown]
  - Exercise tolerance decreased [Not Recovered/Not Resolved]
  - Benign prostatic hyperplasia [Unknown]
  - Skin disorder [Unknown]
  - Hypogonadism [Not Recovered/Not Resolved]
  - Adrenal adenoma [Unknown]
  - Nail discolouration [Unknown]
  - Dyspnoea exertional [Unknown]
  - Hyperaesthesia [Unknown]
  - Nausea [Recovered/Resolved]
  - Mucosal inflammation [Unknown]
  - Influenza like illness [Recovered/Resolved]
  - Pain [Unknown]
  - Body temperature increased [Recovered/Resolved]
  - Bronchitis [Unknown]
  - Nasopharyngitis [Unknown]
  - Fatigue [Unknown]
  - Anaemia [Not Recovered/Not Resolved]
  - Productive cough [Unknown]
  - Rash [Recovered/Resolved]
  - Diarrhoea [Recovered/Resolved]
  - Cough [Unknown]
  - Pyrexia [Unknown]

NARRATIVE: CASE EVENT DATE: 20141101
